FAERS Safety Report 12219415 (Version 1)
Quarter: 2016Q1

REPORT INFORMATION
  Report Type: Report from Study
  Country: US (occurrence: US)
  Receive Date: 20160329
  Receipt Date: 20160329
  Transmission Date: 20160526
  Serious: No
  Sender: FDA-Public Use
  Company Number: GXBR2016US000617

PATIENT
  Age: 27 Year
  Sex: Female
  Weight: 67.57 kg

DRUGS (8)
  1. PMS-PROMETHAZINE [Concomitant]
     Indication: VOMITING
  2. PREDNISONE. [Concomitant]
     Active Substance: PREDNISONE
     Indication: OROPHARYNGEAL PAIN
     Dosage: 20 MG, BID3SDO
     Route: 048
     Dates: start: 20150828, end: 201509
  3. METHOCARBAMOL. [Concomitant]
     Active Substance: METHOCARBAMOL
     Indication: MUSCLE SPASMS
     Dosage: 50 MG, TID PRN
     Route: 048
     Dates: start: 20151017
  4. PMS-PROMETHAZINE [Concomitant]
     Indication: NAUSEA
     Dosage: 25 MG, Q6H
     Route: 048
     Dates: start: 20150722
  5. APRAZO [Concomitant]
     Indication: ANXIETY
     Dosage: 0.25 MG, PRN DAILY
     Route: 048
     Dates: start: 20150828
  6. AZITHROMYCIN ANHYDROUS. [Concomitant]
     Active Substance: AZITHROMYCIN ANHYDROUS
     Indication: OROPHARYNGEAL PAIN
     Dosage: 2 TABLETS, THEN 1 PER DAY
     Route: 048
     Dates: start: 20150828, end: 201509
  7. APAP/CODEINE [Concomitant]
     Active Substance: ACETAMINOPHEN\CODEINE PHOSPHATE
     Indication: PAIN
     Dosage: UNK DF, Q6H
     Route: 048
     Dates: start: 20151017
  8. GLATOPA [Suspect]
     Active Substance: GLATIRAMER ACETATE
     Indication: MULTIPLE SCLEROSIS
     Dosage: 20 MG, QD
     Route: 058
     Dates: start: 20160107, end: 20160127

REACTIONS (8)
  - Generalised erythema [Recovered/Resolved]
  - Urticaria [Recovered/Resolved]
  - Nausea [Recovered/Resolved]
  - Palpitations [Recovered/Resolved]
  - Headache [Recovered/Resolved]
  - Hypersensitivity [Recovered/Resolved]
  - Dizziness [Recovered/Resolved]
  - Photopsia [Recovered/Resolved]

NARRATIVE: CASE EVENT DATE: 20160127
